FAERS Safety Report 15268409 (Version 1)
Quarter: 2018Q3

REPORT INFORMATION
  Report Type: Spontaneous
  Country: US (occurrence: US)
  Receive Date: 20180726
  Receipt Date: 20180726
  Transmission Date: 20181010
  Serious: Yes (Other)
  Sender: FDA-Public Use
  Company Number: None

PATIENT
  Age: 67 Year
  Sex: Female
  Weight: 184 kg

DRUGS (8)
  1. FASLODEX [Concomitant]
     Active Substance: FULVESTRANT
  2. SIMVASTATIN. [Concomitant]
     Active Substance: SIMVASTATIN
  3. HUMALOG [Concomitant]
     Active Substance: INSULIN LISPRO
  4. ASPIRIN. [Concomitant]
     Active Substance: ASPIRIN
  5. IBRANCE [Suspect]
     Active Substance: PALBOCICLIB
     Indication: BREAST CANCER
     Route: 048
     Dates: start: 20170626
  6. HCTZ [Concomitant]
     Active Substance: HYDROCHLOROTHIAZIDE
  7. LUTEIN [Concomitant]
     Active Substance: LUTEIN
  8. LOSARTAN. [Concomitant]
     Active Substance: LOSARTAN

REACTIONS (1)
  - Dry eye [None]

NARRATIVE: CASE EVENT DATE: 20180726
